FAERS Safety Report 18205045 (Version 1)
Quarter: 2020Q3

REPORT INFORMATION
  Report Type: Spontaneous
  Country: FR (occurrence: FR)
  Receive Date: 20200828
  Receipt Date: 20200828
  Transmission Date: 20201103
  Serious: Yes (Hospitalization)
  Sender: FDA-Public Use
  Company Number: FR-ROCHE-103360

PATIENT
  Age: 49 Year
  Sex: Female

DRUGS (9)
  1. DIOSMECTITE [Concomitant]
     Active Substance: MONTMORILLONITE
  2. DOXORUBICINE [Concomitant]
     Active Substance: DOXORUBICIN
  3. ORELOX [Suspect]
     Active Substance: CEFPODOXIME
     Indication: PRODUCT USED FOR UNKNOWN INDICATION
     Route: 048
  4. CIPROFLOXACIN. [Suspect]
     Active Substance: CIPROFLOXACIN
     Indication: PRODUCT USED FOR UNKNOWN INDICATION
     Dosage: FORM STRENGTH=200 MG/100ML
     Route: 042
     Dates: start: 19980305, end: 19980313
  5. VISCERALGINE FORTE (CODEINE\METAMIZOLE SODIUM\TIEMONIUM METHYLSULFATE) [Suspect]
     Active Substance: CODEINE\METAMIZOLE SODIUM\TIEMONIUM METHYLSULFATE
     Indication: PRODUCT USED FOR UNKNOWN INDICATION
     Route: 042
     Dates: start: 19980309, end: 19980318
  6. DIOSMIN [Suspect]
     Active Substance: DIOSMIN
     Indication: PRODUCT USED FOR UNKNOWN INDICATION
     Route: 048
     Dates: start: 19980306, end: 19980313
  7. ENDOXAN [Concomitant]
     Active Substance: CYCLOPHOSPHAMIDE
  8. ROCEPHINE [Suspect]
     Active Substance: CEFTRIAXONE SODIUM
     Indication: PRODUCT USED FOR UNKNOWN INDICATION
     Route: 042
     Dates: start: 19980305, end: 19980310
  9. ERCEFURYL [Suspect]
     Active Substance: NIFUROXAZIDE
     Indication: PRODUCT USED FOR UNKNOWN INDICATION
     Route: 048
     Dates: start: 19980309, end: 19980310

REACTIONS (2)
  - Aplastic anaemia [Recovered/Resolved]
  - Myelosuppression [Recovered/Resolved]

NARRATIVE: CASE EVENT DATE: 19980313
